FAERS Safety Report 8948330 (Version 2)
Quarter: 2013Q1

REPORT INFORMATION
  Report Type: Spontaneous
  Country: US (occurrence: US)
  Receive Date: 20121206
  Receipt Date: 20130108
  Transmission Date: 20140127
  Serious: Yes (Death)
  Sender: FDA-Public Use
  Company Number: PHEH2012US023781

PATIENT
  Sex: Female

DRUGS (12)
  1. RECLAST [Suspect]
     Indication: OSTEOPOROSIS
     Dosage: 5 MG/ 100 ML
     Route: 042
     Dates: start: 20111230, end: 20111230
  2. COPAXONE [Concomitant]
     Dosage: 20 MG, QD
  3. PROZA [Concomitant]
     Dosage: 1 DF/DAY
  4. EFEXOR XR [Concomitant]
     Dosage: 1 DF/DAY
  5. MOBIC [Concomitant]
     Dosage: UNK UKN, UNK
  6. FENTAL [Concomitant]
     Dosage: 75 MG OF 3 DAY
  7. VALIUM [Concomitant]
     Dosage: 5 MG, BID
  8. TRAZODONE [Concomitant]
     Dosage: 100 MG, PRN
  9. CINAMET [Concomitant]
     Dosage: UNK UKN, QHS PRN
  10. LORTAB [Concomitant]
     Dosage: UNK UKN, PRN
  11. VIT D [Concomitant]
     Dosage: 50000 IU/WEEK
  12. MULTI-VIT [Concomitant]
     Dosage: 1 DF/DAY

REACTIONS (1)
  - Death [Fatal]
